FAERS Safety Report 9277064 (Version 1)
Quarter: 2013Q2

REPORT INFORMATION
  Report Type: Spontaneous
  Country: DE (occurrence: DE)
  Receive Date: 20130507
  Receipt Date: 20130507
  Transmission Date: 20140414
  Serious: Yes (Hospitalization)
  Sender: FDA-Public Use
  Company Number: DE-MERCK-1305DEU002235

PATIENT
  Age: 76 Year
  Sex: Female
  Weight: 82 kg

DRUGS (10)
  1. JANUVIA [Suspect]
     Indication: TYPE 2 DIABETES MELLITUS
     Dosage: 25 MG, QD
     Route: 048
     Dates: start: 20130207, end: 201303
  2. EBRANTIL [Concomitant]
     Indication: HYPERTENSION
     Dosage: 30 MG, BID
  3. ARICEPT [Concomitant]
     Indication: DEMENTIA
     Dosage: 10 MG, QD
  4. ACTRAPHANE 30 [Concomitant]
     Indication: DIABETES MELLITUS
     Dosage: 16-0-4-0 IU PER DAY
  5. METFORMIN [Concomitant]
     Indication: DIABETES MELLITUS
     Dosage: 850 MG, TWICE A DAY
  6. TORSEMIDE [Concomitant]
     Indication: CARDIAC FAILURE
     Dosage: 2-1-0 PER DAY
  7. AMLODIPINE [Concomitant]
     Indication: HYPERTENSION
     Dosage: 5 MG, BID
  8. DIPYRONE [Concomitant]
     Indication: PAIN
     Dosage: 20-20-20-20 PER DAY
  9. MIMPARA [Concomitant]
     Indication: HYPERPARATHYROIDISM
     Dosage: 30 MG, ONCE A DAY
     Route: 048
  10. PANTOPRAZOLE [Concomitant]
     Indication: GASTRITIS
     Dosage: 40 MG, QD

REACTIONS (3)
  - Lipase increased [Unknown]
  - Microcytic anaemia [Unknown]
  - Gastritis [Unknown]
